FAERS Safety Report 5847528-5 (Version None)
Quarter: 2008Q3

REPORT INFORMATION
  Report Type: 
  Country: None (occurrence: None)
  Receive Date: 20080814
  Receipt Date: 20080730
  Transmission Date: 20090109
  Serious: Yes (Hospitalization)
  Sender: FDA-Public Use
  Company Number: 8019102

PATIENT
  Age: 22 Year
  Sex: Female
  Weight: 75 kg

DRUGS (11)
  1. KEPPRA [Suspect]
     Indication: CONVULSION
     Dosage: 4000 MG /D
     Dates: start: 20010101, end: 20060801
  2. KEPPRA [Suspect]
     Indication: EPILEPSY
     Dosage: 4000 MG /D
     Dates: start: 20010101, end: 20060801
  3. KEPPRA [Suspect]
     Indication: CONVULSION
     Dosage: 3000 MG /D
     Dates: start: 20060801, end: 20060801
  4. KEPPRA [Suspect]
     Indication: EPILEPSY
     Dosage: 3000 MG /D
     Dates: start: 20060801, end: 20060801
  5. KEPPRA [Suspect]
     Indication: CONVULSION
     Dosage: 2000 MG /D
     Dates: start: 20060801, end: 20060801
  6. KEPPRA [Suspect]
     Indication: EPILEPSY
     Dosage: 2000 MG /D
     Dates: start: 20060801, end: 20060801
  7. KEPPRA [Suspect]
     Indication: CONVULSION
     Dosage: 1000 MG /D
     Dates: start: 20060801, end: 20060825
  8. KEPPRA [Suspect]
     Indication: EPILEPSY
     Dosage: 1000 MG /D
     Dates: start: 20060801, end: 20060825
  9. DILANTIN [Concomitant]
  10. TRANXENE [Concomitant]
  11. TOPAMAX [Concomitant]

REACTIONS (13)
  - ABNORMAL BEHAVIOUR [None]
  - ANGER [None]
  - AUTISM [None]
  - DELUSION [None]
  - DRUG TOXICITY [None]
  - HALLUCINATION [None]
  - HYPOPHAGIA [None]
  - INCONTINENCE [None]
  - INDIFFERENCE [None]
  - LETHARGY [None]
  - MOOD SWINGS [None]
  - QUALITY OF LIFE DECREASED [None]
  - SPEECH DISORDER [None]
